FAERS Safety Report 6854131-7 (Version None)
Quarter: 2010Q3

REPORT INFORMATION
  Report Type: 
  Country: None (occurrence: None)
  Receive Date: 20100717
  Receipt Date: 20071227
  Transmission Date: 20110219
  Serious: No
  Sender: FDA-Public Use
  Company Number: US-PFIZER INC-2007108934

PATIENT
  Sex: Male
  Weight: 95.454 kg

DRUGS (4)
  1. CHANTIX [Suspect]
     Indication: SMOKING CESSATION THERAPY
     Route: 048
     Dates: start: 20071225
  2. LIPITOR [Concomitant]
  3. ZETIA [Concomitant]
  4. XANAX [Concomitant]

REACTIONS (1)
  - INSOMNIA [None]
